FAERS Safety Report 5510328-X (Version None)
Quarter: 2007Q4

REPORT INFORMATION
  Report Type: 
  Country: None (occurrence: None)
  Receive Date: 20071108
  Receipt Date: 20071029
  Transmission Date: 20080405
  Serious: Yes (Death, Other)
  Sender: FDA-Public Use
  Company Number: US-PFIZER INC-2007091174

PATIENT

DRUGS (4)
  1. ZYVOX [Suspect]
  2. VORICONAZOLE [Concomitant]
  3. MICAFUNGIN [Concomitant]
  4. AMBISOME [Concomitant]

REACTIONS (2)
  - CARDIOMYOPATHY [None]
  - LACTIC ACIDOSIS [None]
